FAERS Safety Report 17778235 (Version 3)
Quarter: 2020Q2

REPORT INFORMATION
  Report Type: Spontaneous
  Country: AE (occurrence: AE)
  Receive Date: 20200513
  Receipt Date: 20200606
  Transmission Date: 20200714
  Serious: Yes (Disabling, Other)
  Sender: FDA-Public Use
  Company Number: AE-TAKEDA-2020TUS022132

PATIENT
  Age: 55 Year
  Sex: Male

DRUGS (3)
  1. VELCADE [Suspect]
     Active Substance: BORTEZOMIB
     Indication: AUTOIMMUNE HAEMOLYTIC ANAEMIA
     Dosage: 1.3 MILLIGRAM/KILOGRAM, 2/WEEK
     Route: 058
     Dates: start: 20200109, end: 20200407
  2. VELCADE [Suspect]
     Active Substance: BORTEZOMIB
     Dosage: 2.5 MILLIGRAM
     Route: 058
  3. PREDNISOLONE. [Concomitant]
     Active Substance: PREDNISOLONE
     Dosage: UNK
     Route: 065

REACTIONS (4)
  - Injection site inflammation [Not Recovered/Not Resolved]
  - Off label use [Unknown]
  - Abdominal pain [Not Recovered/Not Resolved]
  - Product use in unapproved indication [Unknown]

NARRATIVE: CASE EVENT DATE: 202003
